FAERS Safety Report 7850435-X (Version None)
Quarter: 2011Q4

REPORT INFORMATION
  Report Type: 
  Country: None (occurrence: None)
  Receive Date: 20111026
  Receipt Date: 20111026
  Transmission Date: 20120403
  Serious: Yes (Hospitalization)
  Sender: FDA-Public Use
  Company Number: None

PATIENT
  Age: 56 Year
  Sex: Male
  Weight: 90.718 kg

DRUGS (2)
  1. VANCOMYCIN HCL [Suspect]
  2. VANCOMYCIN HCL [Concomitant]

REACTIONS (2)
  - BLOOD CREATININE INCREASED [None]
  - ANTIBIOTIC LEVEL ABOVE THERAPEUTIC [None]
